FAERS Safety Report 7043006-9 (Version None)
Quarter: 2010Q3

REPORT INFORMATION
  Report Type: 
  Country: None (occurrence: None)
  Receive Date: 20100929
  Receipt Date: 20100804
  Transmission Date: 20110219
  Serious: No
  Sender: FDA-Public Use
  Company Number: US-WYE-H16757110

PATIENT
  Age: 59 Year
  Sex: Female
  Weight: 76.27 kg

DRUGS (4)
  1. PRISTIQ [Suspect]
     Indication: DEPRESSION
     Dosage: 50 MG 1X PER 1 DAY
     Dates: start: 20100701
  2. SYNTHROID [Concomitant]
  3. BENICAR [Concomitant]
  4. ATIVAN [Concomitant]

REACTIONS (5)
  - AGITATION [None]
  - CONDITION AGGRAVATED [None]
  - CRYING [None]
  - EMOTIONAL DISORDER [None]
  - INSOMNIA [None]
